FAERS Safety Report 9537487 (Version 3)
Quarter: 2013Q4

REPORT INFORMATION
  Report Type: Report from Study
  Country: NO (occurrence: NO)
  Receive Date: 20130919
  Receipt Date: 20131029
  Transmission Date: 20140711
  Serious: Yes (Other)
  Sender: FDA-Public Use
  Company Number: NO-JNJFOC-20130908986

PATIENT
  Sex: Female

DRUGS (4)
  1. TOPIRAMATE [Suspect]
     Indication: EPILEPSY
     Route: 048
  2. TOPIRAMATE [Suspect]
     Indication: EPILEPSY
     Route: 048
  3. LEVETIRACETAM [Suspect]
     Indication: EPILEPSY
     Route: 065
  4. LEVETIRACETAM [Suspect]
     Indication: EPILEPSY
     Route: 065

REACTIONS (4)
  - Grand mal convulsion [Unknown]
  - Premature labour [Recovered/Resolved]
  - Exposure during pregnancy [Recovered/Resolved]
  - Drug level decreased [Unknown]
